FAERS Safety Report 21861504 (Version 1)
Quarter: 2023Q1

REPORT INFORMATION
  Report Type: Spontaneous
  Country: US (occurrence: US)
  Receive Date: 20230113
  Receipt Date: 20230113
  Transmission Date: 20230417
  Serious: Yes (Hospitalization)
  Sender: FDA-Public Use
  Company Number: US-IBSA PHARMA INC.-2022IBS000207

PATIENT

DRUGS (3)
  1. TIROSINT [Suspect]
     Active Substance: LEVOTHYROXINE SODIUM
     Indication: Thyroid therapy
     Dosage: 88 MICROGRAM, UNK
     Route: 048
  2. TIROSINT [Suspect]
     Active Substance: LEVOTHYROXINE SODIUM
     Dosage: 112 MICROGRAM, ONCE
     Route: 048
     Dates: start: 20210219, end: 20220619
  3. TIROSINT [Suspect]
     Active Substance: LEVOTHYROXINE SODIUM
     Dosage: 100 MICROGRAM, UNK
     Route: 048
     Dates: start: 20220629

REACTIONS (9)
  - Tremor [Unknown]
  - Hypertension [Unknown]
  - Vertigo [Recovered/Resolved]
  - Dizziness [Recovering/Resolving]
  - Feeling jittery [Recovering/Resolving]
  - Head discomfort [Recovering/Resolving]
  - Adverse event [Recovering/Resolving]
  - Fatigue [Unknown]
  - Laboratory test abnormal [Unknown]

NARRATIVE: CASE EVENT DATE: 20220613
